FAERS Safety Report 7535841-5 (Version None)
Quarter: 2011Q2

REPORT INFORMATION
  Report Type: 
  Country: None (occurrence: None)
  Receive Date: 20110524
  Receipt Date: 20110203
  Transmission Date: 20111010
  Serious: Yes (Other)
  Sender: FDA-Public Use
  Company Number: 021270

PATIENT
  Sex: Female
  Weight: 98 kg

DRUGS (9)
  1. CIMZIA [Suspect]
     Indication: CROHN'S DISEASE
     Dosage: (400 MG 1X/MONTH SUBCUTANEOUS)
     Route: 058
     Dates: start: 20100507
  2. CITALOPRAM HYDROBROMIDE [Concomitant]
  3. SINGULAIR [Concomitant]
  4. DEXLANSOPRAZOLE [Concomitant]
  5. PHENERGAN /00033001/ [Concomitant]
  6. DILTIAZEM HCL [Concomitant]
  7. TRAMADOL HCL [Concomitant]
  8. HYLAN G-F 20 [Concomitant]
  9. POTASSIUM [Concomitant]

REACTIONS (8)
  - CROHN'S DISEASE [None]
  - RASH PRURITIC [None]
  - JOINT SWELLING [None]
  - INJECTION SITE HAEMATOMA [None]
  - FLUSHING [None]
  - ARTHRALGIA [None]
  - INJECTION SITE HAEMORRHAGE [None]
  - PAIN [None]
